FAERS Safety Report 8357593-1 (Version None)
Quarter: 2012Q2

REPORT INFORMATION
  Report Type: 
  Country: None (occurrence: None)
  Receive Date: 20120514
  Receipt Date: 20120430
  Transmission Date: 20120825
  Serious: Yes (Other)
  Sender: FDA-Public Use
  Company Number: AT-MYLANLABS-2012S1009172

PATIENT
  Age: 62 Year
  Sex: Female

DRUGS (15)
  1. DIAZEPAM [Suspect]
     Dosage: 2 X 5MG
     Route: 065
  2. FENTANYL-100 [Suspect]
     Dosage: 150 MICROG
     Route: 062
  3. FLUOXETINE [Suspect]
     Dosage: 40 MG/DAY
     Route: 065
  4. AMITRIPTYLINE HCL [Suspect]
     Dosage: 100 MG/DAY
     Route: 065
  5. HYDROMORPHONE HCL [Suspect]
     Dosage: 5.2MG (RESCUE MEDICATION)
     Route: 048
     Dates: start: 20100101
  6. GABAPENTIN [Suspect]
     Indication: NEURALGIA
     Dosage: OVER 3 DAYS UP TO 900 MG/DAY
     Route: 065
     Dates: start: 20100101
  7. ASPIRIN [Concomitant]
     Dosage: 100 MG/DAY
     Route: 065
  8. METOPROLOL TARTRATE [Concomitant]
     Dosage: 47.5 MG/DAY
     Route: 065
  9. ANASTROZOLE [Concomitant]
     Indication: BREAST CANCER
     Route: 065
  10. FENTANYL-100 [Suspect]
     Dosage: Q72H
     Route: 062
  11. LEVOTHYROXINE SODIUM [Concomitant]
     Dosage: 150 MICROG/DAY
     Route: 065
  12. NITROGLYCERIN [Concomitant]
     Route: 062
  13. DIPYRONE TAB [Concomitant]
     Dosage: 4 G/DAY
     Route: 065
  14. ALPRAZOLAM [Suspect]
     Dosage: 0.5 MG/DAY
     Route: 065
  15. SIMVASTATIN [Concomitant]
     Dosage: 40 MG/DAY
     Route: 065

REACTIONS (1)
  - DELIRIUM [None]
